FAERS Safety Report 5625953-5 (Version None)
Quarter: 2008Q1

REPORT INFORMATION
  Report Type: 
  Country: None (occurrence: None)
  Receive Date: 20080214
  Receipt Date: 20080213
  Transmission Date: 20080703
  Serious: Yes (Hospitalization)
  Sender: FDA-Public Use
  Company Number: A0708882A

PATIENT
  Age: 71 Year
  Sex: Male

DRUGS (1)
  1. ALLI [Suspect]
     Indication: DRUG USE FOR UNKNOWN INDICATION

REACTIONS (3)
  - AORTIC VALVE STENOSIS [None]
  - CARDIAC MURMUR [None]
  - CARDIAC OPERATION [None]
